FAERS Safety Report 10427991 (Version 1)
Quarter: 2014Q3

REPORT INFORMATION
  Report Type: Spontaneous
  Country: NZ (occurrence: NZ)
  Receive Date: 20140903
  Receipt Date: 20140903
  Transmission Date: 20150326
  Serious: Yes (Hospitalization, Other)
  Sender: FDA-Public Use
  Company Number: NZ-ACTAVIS-2014-18992

PATIENT
  Age: 77 Year
  Sex: Male

DRUGS (1)
  1. RISPERIDONE (UNKNOWN) [Suspect]
     Active Substance: RISPERIDONE
     Indication: SCHIZOPHRENIA
     Dosage: UNK. FORTNIGHTLY LONG ACTING RISPERIDONE INJECTIONS
     Route: 065

REACTIONS (1)
  - Akathisia [Unknown]
